FAERS Safety Report 8341569-4 (Version None)
Quarter: 2012Q2

REPORT INFORMATION
  Report Type: 
  Country: None (occurrence: None)
  Receive Date: 20120507
  Receipt Date: 20120425
  Transmission Date: 20120825
  Serious: Yes (Hospitalization, Other)
  Sender: FDA-Public Use
  Company Number: JP-BRISTOL-MYERS SQUIBB COMPANY-16539686

PATIENT
  Age: 47 Year
  Sex: Male
  Weight: 79 kg

DRUGS (20)
  1. PELEX [Suspect]
     Indication: NASOPHARYNGITIS
     Dosage: REG1:1G,TID;ORAL;13APR2012-15APR2012(3D);GRANULES REG2:3GM,DAILY;ORAL 20APR2012-UNK
     Route: 048
     Dates: start: 20120413
  2. CALSLOT [Suspect]
     Indication: HYPERTENSION
     Dosage: TABS
     Route: 048
     Dates: start: 20111226
  3. MEDICON [Suspect]
     Indication: NASOPHARYNGITIS
     Dosage: TABS REG1:15MG,TID;ORAL;13APR2012-15APR2012 REG2:45MG,DAILY;ORAL;20APR2012-UNK
     Route: 048
     Dates: start: 20120413
  4. BROTIZOLAM [Suspect]
     Indication: INSOMNIA
     Dosage: REG 2-0.5MG-15APR12-ONG
     Route: 048
     Dates: start: 20120409, end: 20120415
  5. LIVOSTIN [Concomitant]
     Dosage: NASAL DROPS
     Route: 045
     Dates: start: 20120412, end: 20120412
  6. RISPERDAL [Concomitant]
     Dates: start: 20070807, end: 20111016
  7. ARIPIPRAZOLE [Suspect]
     Indication: SCHIZOPHRENIA
     Dosage: INJ
     Route: 065
     Dates: start: 20111212, end: 20120402
  8. POTASSIUM CHLORIDE [Suspect]
     Indication: NEUROLEPTIC MALIGNANT SYNDROME
     Route: 042
     Dates: start: 20120413, end: 20120415
  9. TATHION [Suspect]
     Indication: NEUROLEPTIC MALIGNANT SYNDROME
     Dosage: INJECTION
     Route: 042
     Dates: start: 20120413, end: 20120415
  10. DIOVAN [Suspect]
     Indication: HYPERTENSION
     Dosage: TABS
     Route: 048
     Dates: start: 20110509
  11. ABILIFY [Suspect]
     Indication: SCHIZOPHRENIA
     Dosage: 07AUG07-26SEP11;12MG,27SEP11-02OCT11;24MG,03OCT11-12APR12;193D
     Route: 048
     Dates: start: 20070807, end: 20120412
  12. NEO-MINOPHAGEN C [Suspect]
     Indication: NEUROLEPTIC MALIGNANT SYNDROME
     Route: 042
     Dates: start: 20120413, end: 20120415
  13. DANTRIUM [Suspect]
     Indication: NEUROLEPTIC MALIGNANT SYNDROME
     Dosage: REG 1 REG 2-16APR12-ONG
     Route: 048
     Dates: start: 20120413, end: 20120415
  14. FAMOTIDINE [Concomitant]
     Dates: start: 20111024, end: 20111107
  15. OLOPATADINE HCL [Concomitant]
     Dates: start: 20120412, end: 20120412
  16. PLACEBO [Suspect]
  17. CEFOPERAZONE SODIUM + SULBACTAM SODIUM [Suspect]
     Indication: NEUROLEPTIC MALIGNANT SYNDROME
     Route: 042
     Dates: start: 20120413, end: 20120415
  18. MUCOSTA [Suspect]
     Indication: GASTRITIS
     Dosage: TAB
     Route: 048
     Dates: start: 20060322, end: 20120415
  19. ONON [Concomitant]
     Dates: start: 20120412, end: 20120412
  20. CLEANAL [Concomitant]
     Dates: start: 20120412, end: 20120412

REACTIONS (2)
  - WITHDRAWAL SYNDROME [None]
  - NEUROLEPTIC MALIGNANT SYNDROME [None]
